FAERS Safety Report 26182374 (Version 1)
Quarter: 2025Q4

REPORT INFORMATION
  Report Type: Spontaneous
  Country: US (occurrence: US)
  Receive Date: 20251221
  Receipt Date: 20251221
  Transmission Date: 20260117
  Serious: No
  Sender: ACCORD
  Company Number: US-COHERUS BIOSCIENCES, INC-2025-COH-US000449

PATIENT
  Age: 77 Year
  Sex: Male

DRUGS (22)
  1. UDENYCA [Suspect]
     Active Substance: PEGFILGRASTIM-CBQV
     Indication: Febrile neutropenia
     Dosage: 6 MG/0.6 ML, Q3WEEKS
     Route: 058
     Dates: start: 20250109, end: 20250109
  2. UDENYCA [Suspect]
     Active Substance: PEGFILGRASTIM-CBQV
     Indication: Febrile neutropenia
     Dosage: 6 MG/0.6 ML, Q3WEEKS
     Route: 058
     Dates: start: 20250109, end: 20250109
  3. PREDNISONE [Concomitant]
     Active Substance: PREDNISONE
     Dosage: UNK
  4. PROCHLORPERAZINE [Concomitant]
     Active Substance: PROCHLORPERAZINE
     Dosage: UNK
  5. NYSTATIN [Concomitant]
     Active Substance: NYSTATIN
     Dosage: UNK
     Route: 048
  6. ABIRATERONE [Concomitant]
     Active Substance: ABIRATERONE
     Dosage: UNK
  7. TAXOTERE [Concomitant]
     Active Substance: DOCETAXEL
     Dosage: UNK
     Route: 042
  8. DILTIAZEM [Concomitant]
     Active Substance: DILTIAZEM
     Dosage: UNK
  9. HYDROCHLOROTHIAZIDE\LISINOPRIL [Concomitant]
     Active Substance: HYDROCHLOROTHIAZIDE\LISINOPRIL
     Dosage: UNK
  10. ZOFRAN [Concomitant]
     Active Substance: ONDANSETRON HYDROCHLORIDE
     Dosage: UNK
  11. UDENYCA [Suspect]
     Active Substance: PEGFILGRASTIM-CBQV
     Indication: Febrile neutropenia
     Dosage: 6 MG/0.6 ML, Q3WEEKS
     Route: 058
     Dates: start: 20250130, end: 20250130
  12. UDENYCA [Suspect]
     Active Substance: PEGFILGRASTIM-CBQV
     Indication: Febrile neutropenia
     Dosage: 6 MG/0.6 ML, Q3WEEKS
     Route: 058
     Dates: start: 20250130, end: 20250130
  13. UDENYCA [Suspect]
     Active Substance: PEGFILGRASTIM-CBQV
     Indication: Febrile neutropenia
     Dosage: 6 MG/0.6 ML, Q3WEEKS
     Route: 058
     Dates: start: 20250221, end: 20250221
  14. UDENYCA [Suspect]
     Active Substance: PEGFILGRASTIM-CBQV
     Indication: Febrile neutropenia
     Dosage: 6 MG/0.6 ML, Q3WEEKS
     Route: 058
     Dates: start: 20250221, end: 20250221
  15. UDENYCA [Suspect]
     Active Substance: PEGFILGRASTIM-CBQV
     Indication: Febrile neutropenia
     Dosage: 6 MG/0.6 ML, Q3WEEKS
     Route: 058
     Dates: start: 20250314, end: 20250314
  16. UDENYCA [Suspect]
     Active Substance: PEGFILGRASTIM-CBQV
     Indication: Febrile neutropenia
     Dosage: 6 MG/0.6 ML, Q3WEEKS
     Route: 058
     Dates: start: 20250314, end: 20250314
  17. UDENYCA [Suspect]
     Active Substance: PEGFILGRASTIM-CBQV
     Indication: Febrile neutropenia
     Dosage: 6 MG/0.6 ML, Q3WEEKS
     Route: 058
     Dates: start: 20250404, end: 20250404
  18. UDENYCA [Suspect]
     Active Substance: PEGFILGRASTIM-CBQV
     Indication: Febrile neutropenia
     Dosage: 6 MG/0.6 ML, Q3WEEKS
     Route: 058
     Dates: start: 20250404, end: 20250404
  19. UDENYCA [Suspect]
     Active Substance: PEGFILGRASTIM-CBQV
     Indication: Febrile neutropenia
     Dosage: 6 MG/0.6 ML, Q3WEEKS
     Route: 058
     Dates: start: 20250425, end: 20250425
  20. UDENYCA [Suspect]
     Active Substance: PEGFILGRASTIM-CBQV
     Indication: Febrile neutropenia
     Dosage: 6 MG/0.6 ML, Q3WEEKS
     Route: 058
     Dates: start: 20250425, end: 20250425
  21. UDENYCA [Suspect]
     Active Substance: PEGFILGRASTIM-CBQV
     Indication: Febrile neutropenia
     Dosage: 6 MG/0.6 ML, Q3WEEKS
     Route: 058
     Dates: start: 20250516
  22. UDENYCA [Suspect]
     Active Substance: PEGFILGRASTIM-CBQV
     Indication: Febrile neutropenia
     Dosage: 6 MG/0.6 ML, Q3WEEKS
     Route: 058
     Dates: start: 20250516

REACTIONS (2)
  - Device malfunction [Not Recovered/Not Resolved]
  - Incorrect dose administered by device [Not Recovered/Not Resolved]

NARRATIVE: CASE EVENT DATE: 20250517
